FAERS Safety Report 7493491-3 (Version None)
Quarter: 2011Q2

REPORT INFORMATION
  Report Type: 
  Country: None (occurrence: None)
  Receive Date: 20110520
  Receipt Date: 20110518
  Transmission Date: 20111010
  Serious: Yes (Hospitalization, Other)
  Sender: FDA-Public Use
  Company Number: DE-SANOFI-AVENTIS-2011SA014868

PATIENT
  Age: 47 Year
  Sex: Female
  Weight: 77 kg

DRUGS (16)
  1. HYDROXYCHLOROQUINE SULFATE [Suspect]
     Indication: RHEUMATOID ARTHRITIS
     Route: 048
     Dates: start: 20110104, end: 20110118
  2. HYDROXYCHLOROQUINE SULFATE [Suspect]
     Route: 048
     Dates: start: 20110321
  3. HYDROXYCHLOROQUINE SULFATE [Suspect]
     Route: 048
     Dates: start: 20110104, end: 20110118
  4. EPROSARTAN [Concomitant]
     Route: 048
  5. HYDROXYCHLOROQUINE SULFATE [Suspect]
     Route: 048
     Dates: start: 20110321
  6. SIRDALUD [Concomitant]
  7. HYDROXYCHLOROQUINE SULFATE [Suspect]
     Route: 048
     Dates: start: 20110104, end: 20110118
  8. ATMADISC [Concomitant]
     Route: 048
  9. RESTEX [Concomitant]
  10. AMITRIPTYLINE HCL [Concomitant]
     Route: 048
  11. NOVALGIN [Concomitant]
     Route: 048
  12. ALBUTEROL [Concomitant]
  13. IMUREK [Concomitant]
     Indication: AUTOIMMUNE HEPATITIS
     Route: 048
  14. HYDROXYCHLOROQUINE SULFATE [Suspect]
     Route: 048
     Dates: start: 20110321
  15. PANTOPRAZOLE [Concomitant]
     Route: 048
  16. PREDNISONE [Concomitant]
     Indication: AUTOIMMUNE HEPATITIS
     Route: 048

REACTIONS (5)
  - AUTOIMMUNE HEPATITIS [None]
  - HEPATIC NECROSIS [None]
  - FATIGUE [None]
  - TRANSAMINASES INCREASED [None]
  - HEPATITIS TOXIC [None]
